FAERS Safety Report 17246333 (Version 1)
Quarter: 2020Q1

REPORT INFORMATION
  Report Type: Spontaneous
  Country: US (occurrence: US)
  Receive Date: 20200108
  Receipt Date: 20200108
  Transmission Date: 20200409
  Serious: No
  Sender: FDA-Public Use
  Company Number: US-TEVA-2020-US-1164729

PATIENT
  Age: 59 Year
  Sex: Female

DRUGS (1)
  1. CLARAVIS [Suspect]
     Active Substance: ISOTRETINOIN
     Indication: KERATOSIS FOLLICULAR
     Route: 065
     Dates: start: 201912, end: 201912

REACTIONS (12)
  - Skin exfoliation [Unknown]
  - Lip exfoliation [Recovering/Resolving]
  - Skin mass [Recovering/Resolving]
  - Rash [Unknown]
  - Dry eye [Not Recovered/Not Resolved]
  - Formication [Unknown]
  - Pruritus [Unknown]
  - Hyperhidrosis [Unknown]
  - Nasal dryness [Recovering/Resolving]
  - Paraesthesia [Unknown]
  - Headache [Unknown]
  - Chapped lips [Unknown]
